FAERS Safety Report 17021511 (Version 1)
Quarter: 2019Q4

REPORT INFORMATION
  Report Type: Spontaneous
  Country: US (occurrence: US)
  Receive Date: 20191007
  Receipt Date: 20191007
  Transmission Date: 20200122
  Serious: No
  Sender: FDA-Public Use
  Company Number: None

PATIENT
  Age: 65 Year
  Sex: Female

DRUGS (15)
  1. ALLOPURINOL. [Concomitant]
     Active Substance: ALLOPURINOL
  2. DILTIAZEM. [Concomitant]
     Active Substance: DILTIAZEM
  3. MIRTAZAPINE. [Concomitant]
     Active Substance: MIRTAZAPINE
  4. BUMETANIDE. [Concomitant]
     Active Substance: BUMETANIDE
  5. CYCLOSPORINE 25MG [Suspect]
     Active Substance: CYCLOSPORINE
     Indication: RENAL TRANSPLANT
     Dosage: ?          OTHER DOSE:1 CAPULE, 2 CS;OTHER FREQUENCY:QAM, QPM;?
     Route: 048
     Dates: start: 20150612
  6. POT CL MICRO [Concomitant]
  7. CONTOUR [Concomitant]
  8. GLIPIZIDE. [Concomitant]
     Active Substance: GLIPIZIDE
  9. CEFADROXIL. [Concomitant]
     Active Substance: CEFADROXIL
  10. METOPROLOL TARTRATE. [Concomitant]
     Active Substance: METOPROLOL TARTRATE
  11. CALCITROL [Concomitant]
  12. PANTOPRAZOLE [Concomitant]
     Active Substance: PANTOPRAZOLE
  13. DONEPEZIL. [Concomitant]
     Active Substance: DONEPEZIL
  14. CARVEDILOL. [Concomitant]
     Active Substance: CARVEDILOL
  15. LOSARTAN. [Concomitant]
     Active Substance: LOSARTAN

REACTIONS (1)
  - Infection [None]
